FAERS Safety Report 4709270-3 (Version None)
Quarter: 2005Q3

REPORT INFORMATION
  Report Type: 
  Country: None (occurrence: None)
  Receive Date: 20050708
  Receipt Date: 20050603
  Transmission Date: 20060218
  Serious: Yes (Hospitalization)
  Sender: FDA-Public Use
  Company Number: 2005UW08659

PATIENT
  Age: 20 Year
  Sex: Male
  Weight: 63.2 kg

DRUGS (1)
  1. NEXIUM [Suspect]
     Indication: PEPTIC ULCER
     Route: 048
     Dates: end: 20050425

REACTIONS (11)
  - AMMONIA INCREASED [None]
  - ANGIONEUROTIC OEDEMA [None]
  - BLOOD ELECTROLYTES ABNORMAL [None]
  - BLOOD GASES ABNORMAL [None]
  - CARBON DIOXIDE ABNORMAL [None]
  - HYPERSENSITIVITY [None]
  - PNEUMONIA ASPIRATION [None]
  - STAPHYLOCOCCAL INFECTION [None]
  - SWOLLEN TONGUE [None]
  - VENTRICULAR TACHYCARDIA [None]
  - VOCAL CORD PARALYSIS [None]
